FAERS Safety Report 19677560 (Version 1)
Quarter: 2021Q3

REPORT INFORMATION
  Report Type: Spontaneous
  Country: CN (occurrence: CN)
  Receive Date: 20210810
  Receipt Date: 20210810
  Transmission Date: 20211014
  Serious: Yes (Other)
  Sender: FDA-Public Use
  Company Number: CN-DRREDDYS-OTH/CHN/21/0138556

PATIENT
  Age: 56 Year
  Sex: Male
  Weight: 62 kg

DRUGS (3)
  1. CHLORAZEPOXIDE [Concomitant]
     Indication: SCHIZOPHRENIA
  2. CLOZAPINE TABLETS [Concomitant]
     Active Substance: CLOZAPINE
     Indication: SCHIZOPHRENIA
     Route: 048
     Dates: start: 20210101, end: 20210727
  3. OLANZAPINE. [Suspect]
     Active Substance: OLANZAPINE
     Indication: SCHIZOPHRENIA
     Dosage: 5 MG IN THE NOON AND 15 MG IN THE EVENING
     Route: 048
     Dates: start: 20210101, end: 20210727

REACTIONS (3)
  - Electrocardiogram ST segment elevation [Not Recovered/Not Resolved]
  - Electrocardiogram P wave abnormal [Not Recovered/Not Resolved]
  - Electrocardiogram QT prolonged [Not Recovered/Not Resolved]

NARRATIVE: CASE EVENT DATE: 20210622
